FAERS Safety Report 8104256 (Version 7)
Quarter: 2012Q4

REPORT INFORMATION
  Report Type: 
  Country: US (occurrence: US)
  Receive Date: 20110824
  Receipt Date: 20120911
  Transmission Date: 20130627
  Serious: Yes (Other)
  Sender: FDA-Public Use
  Company Number: US-ROCHE-784698

PATIENT
  Age: 52 None
  Sex: Male
  Weight: 74.8 kg

DRUGS (1)
  1. ACCUTANE [Suspect]
     Indication: ACNE
     Route: 065
     Dates: start: 2004, end: 2006

REACTIONS (11)
  - Crohn^s disease [Unknown]
  - Colitis ulcerative [Unknown]
  - Perirectal abscess [Unknown]
  - Inflammatory bowel disease [Unknown]
  - Intestinal obstruction [Unknown]
  - Cellulitis [Unknown]
  - Colonic fistula [Unknown]
  - Major depression [Unknown]
  - Suicidal ideation [Not Recovered/Not Resolved]
  - Chapped lips [Unknown]
  - Rheumatoid arthritis [Unknown]
